FAERS Safety Report 8838848 (Version 1)
Quarter: 2012Q4

REPORT INFORMATION
  Report Type: Spontaneous
  Country: US (occurrence: None)
  Receive Date: 20121011
  Receipt Date: 20121011
  Transmission Date: 20130627
  Serious: Yes (Death, Other)
  Sender: FDA-Public Use
  Company Number: None

PATIENT
  Sex: Male
  Weight: 68.04 kg

DRUGS (3)
  1. ZOLOFT [Suspect]
     Indication: DEPRESSION
     Dosage: 50mg Daily po
     Route: 048
     Dates: start: 20091130, end: 20100113
  2. ATIVAN [Concomitant]
  3. ATENOLOL [Concomitant]

REACTIONS (5)
  - Agitation [None]
  - Irritability [None]
  - Completed suicide [None]
  - Insomnia [None]
  - Feeling abnormal [None]
